FAERS Safety Report 7226420-8 (Version None)
Quarter: 2011Q1

REPORT INFORMATION
  Report Type: 
  Country: None (occurrence: None)
  Receive Date: 20110105
  Receipt Date: 20101221
  Transmission Date: 20110831
  Serious: Yes (Disabling, Other)
  Sender: FDA-Public Use
  Company Number: AUR-APL-2010-03258

PATIENT
  Age: 55 Year
  Sex: Female
  Weight: 123.37 kg

DRUGS (11)
  1. GLYBURIDE [Suspect]
     Indication: DIABETES MELLITUS
     Dosage: 10 MG - QID
  2. ACETYLSALICYLIC ACID SRT [Concomitant]
  3. INSULIN [Concomitant]
  4. ERGOCALCIFEROL [Concomitant]
  5. LYRICA [Suspect]
     Indication: DIABETIC NEUROPATHY
     Dosage: 75 MG - TID
     Dates: start: 20080401
  6. CRESTOR [Concomitant]
  7. ASCORBIC ACID [Concomitant]
  8. TOCOPHEROL CONCENTRATE CAP [Concomitant]
  9. BYETTA [Concomitant]
  10. IBUPROFEN [Concomitant]
  11. CYANOCOBALAMIN [Concomitant]

REACTIONS (7)
  - DIABETES MELLITUS INADEQUATE CONTROL [None]
  - OEDEMA PERIPHERAL [None]
  - BLOOD PRESSURE INCREASED [None]
  - LOSS OF EMPLOYMENT [None]
  - GASTRIC BYPASS [None]
  - DRUG INEFFECTIVE [None]
  - WEIGHT DECREASED [None]
